FAERS Safety Report 5636985-5 (Version None)
Quarter: 2008Q1

REPORT INFORMATION
  Report Type: 
  Country: None (occurrence: None)
  Receive Date: 20080225
  Receipt Date: 20070320
  Transmission Date: 20080703
  Serious: No
  Sender: FDA-Public Use
  Company Number: US-BRISTOL-MYERS SQUIBB COMPANY-13720412

PATIENT
  Age: 72 Year
  Sex: Female
  Weight: 79 kg

DRUGS (2)
  1. GLUCOPHAGE [Suspect]
  2. BYETTA [Suspect]
     Indication: TYPE 2 DIABETES MELLITUS
     Dosage: BYETTA 10MCG ,5MCG ALTERNATING DOSES SINCE 2006. LOT#A224894 EXPIR: 5/08; LOT#A235820 EXPIR: 7/08
     Route: 058
     Dates: start: 20060101, end: 20070101

REACTIONS (8)
  - BALANCE DISORDER [None]
  - BLOOD GLUCOSE INCREASED [None]
  - DEAFNESS UNILATERAL [None]
  - DEFAECATION URGENCY [None]
  - EAR DISCOMFORT [None]
  - MIDDLE EAR EFFUSION [None]
  - STOMACH DISCOMFORT [None]
  - TINNITUS [None]
